FAERS Safety Report 9513104 (Version 2)
Quarter: 2014Q1

REPORT INFORMATION
  Report Type: Spontaneous
  Country: US (occurrence: None)
  Receive Date: 20130305
  Receipt Date: 20140306
  Transmission Date: 20141002
  Serious: Yes (Other)
  Sender: FDA-Public Use
  Company Number: 163-21880-12101035

PATIENT
  Age: 72 Year
  Sex: Female

DRUGS (2)
  1. REVLIMID [Suspect]
     Indication: MYELODYSPLASTIC SYNDROME
     Dosage: EVERY OTHER DAY FOR 28 DAYS
     Route: 048
     Dates: start: 20100630
  2. ZOLOFT [Concomitant]

REACTIONS (6)
  - Memory impairment [None]
  - Anxiety [None]
  - Insomnia [None]
  - Fatigue [None]
  - Pruritus [None]
  - Diarrhoea [None]
